FAERS Safety Report 5711703-0 (Version None)
Quarter: 2008Q2

REPORT INFORMATION
  Report Type: 
  Country: None (occurrence: None)
  Receive Date: 20080421
  Receipt Date: 20080410
  Transmission Date: 20081010
  Serious: Yes (Other)
  Sender: FDA-Public Use
  Company Number: US-PFIZER INC-2008007926

PATIENT
  Age: 51 Year
  Sex: Female
  Weight: 52.2 kg

DRUGS (2)
  1. CHANTIX [Suspect]
     Indication: TOBACCO USER
     Dates: start: 20070925, end: 20080103
  2. IBANDRONATE SODIUM [Concomitant]

REACTIONS (8)
  - APHASIA [None]
  - ASTHENIA [None]
  - CEREBROVASCULAR ACCIDENT [None]
  - DIPLOPIA [None]
  - HYPOAESTHESIA [None]
  - MUSCULAR WEAKNESS [None]
  - PAIN IN EXTREMITY [None]
  - PAIN IN JAW [None]
